FAERS Safety Report 6090181-9 (Version None)
Quarter: 2009Q1

REPORT INFORMATION
  Report Type: 
  Country: None (occurrence: None)
  Receive Date: 20090224
  Receipt Date: 20081209
  Transmission Date: 20090719
  Serious: No
  Sender: FDA-Public Use
  Company Number: US-ABBOTT-08P-163-0491895-00

PATIENT
  Sex: Male
  Weight: 64.468 kg

DRUGS (7)
  1. SIMCOR [Suspect]
     Indication: BLOOD CHOLESTEROL INCREASED
     Dosage: 500/20 MILLIGRAMS
     Route: 048
     Dates: start: 20081001
  2. METFORMIN [Concomitant]
     Indication: TYPE 2 DIABETES MELLITUS
  3. BENICAR [Concomitant]
     Indication: HYPERTENSION
  4. PLAVIX [Concomitant]
     Indication: CORONARY ARTERIAL STENT INSERTION
  5. PLAVIX [Concomitant]
     Indication: CARDIAC PACEMAKER INSERTION
  6. AMIODARONE [Concomitant]
     Indication: HYPERTENSION
  7. AMIODARONE [Concomitant]
     Indication: BRADYCARDIA

REACTIONS (2)
  - FEELING HOT [None]
  - PARAESTHESIA [None]
